FAERS Safety Report 5724345-8 (Version None)
Quarter: 2008Q2

REPORT INFORMATION
  Report Type: 
  Country: None (occurrence: None)
  Receive Date: 20080430
  Receipt Date: 20080418
  Transmission Date: 20081010
  Serious: Yes (Hospitalization)
  Sender: FDA-Public Use
  Company Number: TW-PFIZER INC-2008026771

PATIENT
  Sex: Male
  Weight: 67 kg

DRUGS (12)
  1. SU-011,248 [Suspect]
     Indication: METASTATIC RENAL CELL CARCINOMA
     Route: 048
     Dates: start: 20060119, end: 20060329
  2. SU-011,248 [Suspect]
     Route: 048
     Dates: start: 20060413, end: 20070816
  3. SU-011,248 [Suspect]
     Route: 048
  4. PREDNISOLONE [Concomitant]
     Route: 048
  5. FLUDROCORTISONE ACETATE [Concomitant]
     Route: 048
  6. ENALAPRIL MALEATE [Concomitant]
     Route: 048
  7. LEVOTHYROXINE SODIUM [Concomitant]
     Route: 048
  8. DOXAZOSIN MESYLATE [Concomitant]
     Route: 048
  9. DEXTROMETHORPHAN HYDROBROMIDE [Concomitant]
     Route: 048
  10. ALL OTHER THERAPEUTIC PRODUCTS [Concomitant]
     Route: 048
  11. AMBROXOL HYDROCHLORIDE [Concomitant]
     Route: 048
  12. LOPERAMIDE HYDROCHLORIDE [Concomitant]
     Route: 048

REACTIONS (1)
  - EMPYEMA [None]
